FAERS Safety Report 22876175 (Version 3)
Quarter: 2023Q4

REPORT INFORMATION
  Report Type: Spontaneous
  Country: IN (occurrence: IN)
  Receive Date: 20230829
  Receipt Date: 20231226
  Transmission Date: 20240110
  Serious: Yes (Other)
  Sender: FDA-Public Use
  Company Number: IN-SANOFI-01736058

PATIENT
  Age: 59 Year
  Sex: Female

DRUGS (1)
  1. LANTUS [Suspect]
     Active Substance: INSULIN GLARGINE
     Indication: Product used for unknown indication
     Dosage: 20 TO 25 UNITS AT 4 P.M, QD

REACTIONS (2)
  - Injection site thrombosis [Unknown]
  - Needle issue [Unknown]

NARRATIVE: CASE EVENT DATE: 20230820
